FAERS Safety Report 4522145-8 (Version None)
Quarter: 2004Q4

REPORT INFORMATION
  Report Type: 
  Country: None (occurrence: None)
  Receive Date: 20041206
  Receipt Date: 20041118
  Transmission Date: 20050328
  Serious: Yes (Hospitalization)
  Sender: FDA-Public Use
  Company Number: 2004BI000054

PATIENT
  Age: 43 Year
  Sex: Male

DRUGS (2)
  1. AVONEX [Suspect]
     Indication: MULTIPLE SCLEROSIS
     Dosage: QW; IM
     Route: 030
     Dates: start: 20040220, end: 20040901
  2. AVONEX [Suspect]
     Indication: MULTIPLE SCLEROSIS
     Dosage: QW; IM
     Route: 030
     Dates: start: 20041001

REACTIONS (4)
  - DIVERTICULITIS [None]
  - ILL-DEFINED DISORDER [None]
  - INFECTION [None]
  - PAIN IN EXTREMITY [None]
